FAERS Safety Report 25077972 (Version 2)
Quarter: 2025Q1

REPORT INFORMATION
  Report Type: Spontaneous
  Country: RU (occurrence: RU)
  Receive Date: 20250314
  Receipt Date: 20250326
  Transmission Date: 20250409
  Serious: Yes (Other)
  Sender: NOVARTIS
  Company Number: RU-002147023-NVSC2025RU040596

PATIENT
  Sex: Female

DRUGS (2)
  1. OFATUMUMAB [Suspect]
     Active Substance: OFATUMUMAB
     Indication: Multiple sclerosis
     Dosage: UNK, QMO
     Route: 065
     Dates: start: 202403
  2. OFATUMUMAB [Suspect]
     Active Substance: OFATUMUMAB
     Route: 065

REACTIONS (3)
  - Rectal polyp [Unknown]
  - Rectal haemorrhage [Unknown]
  - Flatulence [Unknown]
